FAERS Safety Report 4450558-1 (Version None)
Quarter: 2004Q3

REPORT INFORMATION
  Report Type: 
  Country: None (occurrence: None)
  Receive Date: 20040914
  Receipt Date: 20040831
  Transmission Date: 20050211
  Serious: Yes (Hospitalization)
  Sender: FDA-Public Use
  Company Number: 04P-163-0271915-00

PATIENT
  Age: 33 Year
  Sex: Female

DRUGS (6)
  1. DEPAKOTE [Suspect]
     Indication: CONVULSION
     Dosage: SEE IMAGE
     Dates: start: 20020101, end: 20040101
  2. DEPAKOTE [Suspect]
     Indication: CONVULSION
     Dosage: SEE IMAGE
     Dates: start: 20040101, end: 20040101
  3. DEPAKOTE [Suspect]
     Indication: CONVULSION
     Dosage: SEE IMAGE
     Dates: start: 20040806
  4. CARBAMAZEPINE [Suspect]
     Indication: CONVULSION
     Dosage: SEE IMAGE
     Dates: start: 20020101, end: 20040101
  5. CARBAMAZEPINE [Suspect]
     Indication: CONVULSION
     Dosage: SEE IMAGE
     Dates: start: 20040101, end: 20040101
  6. CARBAMAZEPINE [Suspect]
     Indication: CONVULSION
     Dosage: SEE IMAGE
     Dates: start: 20040806

REACTIONS (5)
  - ASTHENIA [None]
  - DIFFICULTY IN WALKING [None]
  - DRUG LEVEL INCREASED [None]
  - HEADACHE [None]
  - NAUSEA [None]
